FAERS Safety Report 6715751-3 (Version None)
Quarter: 2010Q2

REPORT INFORMATION
  Report Type: 
  Country: None (occurrence: None)
  Receive Date: 20100507
  Receipt Date: 20100427
  Transmission Date: 20101027
  Serious: Yes (Other)
  Sender: FDA-Public Use
  Company Number: US-WYE-H14860710

PATIENT
  Sex: Male
  Weight: 90.8 kg

DRUGS (3)
  1. EFFEXOR XR [Suspect]
     Indication: DEPRESSION
     Dates: start: 20100201
  2. ASCORBIC ACID/ERGOCALCIFEROL/FOLIC ACID/NICOTINAMIDE/PANTHENOL/RETINOL [Concomitant]
     Dosage: UNKNOWN
  3. ALEVE (CAPLET) [Interacting]
     Indication: MIGRAINE
     Dosage: 440 MG EVERY 1 TOT
     Dates: start: 20100401, end: 20100401

REACTIONS (11)
  - CHEILITIS [None]
  - CONDITION AGGRAVATED [None]
  - DRUG INTERACTION [None]
  - LIP EXFOLIATION [None]
  - LIP SWELLING [None]
  - MIGRAINE [None]
  - PARAESTHESIA ORAL [None]
  - PHARYNGEAL OEDEMA [None]
  - SWELLING FACE [None]
  - SWOLLEN TONGUE [None]
  - THERAPEUTIC RESPONSE UNEXPECTED [None]
